FAERS Safety Report 20222346 (Version 1)
Quarter: 2021Q4

REPORT INFORMATION
  Report Type: Report from Study
  Country: FR (occurrence: FR)
  Receive Date: 20211223
  Receipt Date: 20211223
  Transmission Date: 20220304
  Serious: Yes (Hospitalization, Other)
  Sender: FDA-Public Use
  Company Number: FR-BAXTER-2021BAX035006

PATIENT
  Age: 73 Year
  Sex: Male
  Weight: 84 kg

DRUGS (32)
  1. METHOTREXATE [Suspect]
     Active Substance: METHOTREXATE
     Indication: Acute lymphocytic leukaemia
     Dosage: DAILY, INDUCTION 1, REGIMEN # 2
     Route: 037
     Dates: start: 20191203, end: 20191204
  2. METHOTREXATE [Suspect]
     Active Substance: METHOTREXATE
     Dosage: 15 MILLIGRAM, DAILY, REGIMEN # 1
     Route: 037
     Dates: start: 20191127, end: 20191127
  3. METHOTREXATE [Suspect]
     Active Substance: METHOTREXATE
     Dosage: 15 MILLIGRAM, DAILY, INDUCTION #2 D2, REGIMEN # 3
     Route: 037
     Dates: start: 20190207, end: 20190207
  4. CYTARABINE [Suspect]
     Active Substance: CYTARABINE
     Indication: Product used for unknown indication
     Dosage: 40 MILLIGRAM, INDUCTION #1,REGIMEN # 2
     Route: 037
     Dates: start: 20191203, end: 20191203
  5. CYTARABINE [Suspect]
     Active Substance: CYTARABINE
     Dosage: DAILY, INDUCTION #2 DAY 2,REGIMEN # 4
     Route: 037
     Dates: start: 20200207, end: 20200207
  6. CYTARABINE [Suspect]
     Active Substance: CYTARABINE
     Dosage: DAILY, INDUCTION #1,REGIMEN # 3
     Route: 037
     Dates: start: 20191204, end: 20191204
  7. CYTARABINE [Suspect]
     Active Substance: CYTARABINE
     Indication: Acute lymphocytic leukaemia
     Dosage: UNK
     Route: 065
     Dates: start: 20191127, end: 20191127
  8. CYCLOPHOSPHAMIDE [Suspect]
     Active Substance: CYCLOPHOSPHAMIDE
     Indication: Acute lymphocytic leukaemia
     Dosage: 560 MILLIGRAM, D4 TO D3, START DATE: 06-FEB-2020
     Route: 042
     Dates: end: 20200208
  9. CYCLOPHOSPHAMIDE [Suspect]
     Active Substance: CYCLOPHOSPHAMIDE
     Dosage: 560 MILLIGRAM, INDUCTION #2, D1 TO D3, START DATE: 06-FEB-2020
     Route: 042
     Dates: end: 20200208
  10. ONCOVIN [Suspect]
     Active Substance: VINCRISTINE SULFATE
     Indication: Acute lymphocytic leukaemia
     Dosage: DAILY, INDUCTION#1 DAY 8, REGIMEN # 2
     Route: 042
     Dates: start: 20191209, end: 20191209
  11. ONCOVIN [Suspect]
     Active Substance: VINCRISTINE SULFATE
     Dosage: 1 MILLIGRAM, DAILY, INDUCTION#1 DAY 22, REGIMEN # 4
     Route: 042
     Dates: start: 20191223, end: 20191223
  12. ONCOVIN [Suspect]
     Active Substance: VINCRISTINE SULFATE
     Dosage: 1 MILLIGRAM, DAILY, INDUCTION#1 DAY 15, REGIMEN # 3
     Route: 042
     Dates: start: 20191216, end: 20191216
  13. ONCOVIN [Suspect]
     Active Substance: VINCRISTINE SULFATE
     Dosage: 1 MILLIGRAM, DAILY, REGIMEN 1
     Route: 042
  14. INOTUZUMAB OZOGAMICIN [Suspect]
     Active Substance: INOTUZUMAB OZOGAMICIN
     Indication: Acute lymphocytic leukaemia
     Dosage: DAILY INDUCTION C1D15, REGIMEN 3
     Route: 042
     Dates: start: 20191216, end: 20200116
  15. INOTUZUMAB OZOGAMICIN [Suspect]
     Active Substance: INOTUZUMAB OZOGAMICIN
     Dosage: 1.6 MILLIGRAM, DAILY, REGIMEN 1
     Route: 042
     Dates: start: 20191202, end: 20191202
  16. INOTUZUMAB OZOGAMICIN [Suspect]
     Active Substance: INOTUZUMAB OZOGAMICIN
     Dosage: 1 MILLIGRAM, DAILY INDUCTION C1D8, REGIMEN 2
     Route: 042
     Dates: start: 20191209, end: 20191209
  17. INOTUZUMAB OZOGAMICIN [Suspect]
     Active Substance: INOTUZUMAB OZOGAMICIN
     Dosage: 0.93 MILLIGRAM, DAILY, INDUCTION#2 DAY1, REGIMEN # 4
     Route: 042
     Dates: start: 20200206, end: 20200206
  18. INOTUZUMAB OZOGAMICIN [Suspect]
     Active Substance: INOTUZUMAB OZOGAMICIN
     Dosage: 0.93 MILLIGRAM, DAILY, INDUCTION#2 DAY8, REGIMEN # 5
     Route: 042
     Dates: start: 20200213, end: 20200213
  19. NOXAFIL [Concomitant]
     Active Substance: POSACONAZOLE
     Indication: Product used for unknown indication
     Dosage: UNK
     Route: 065
     Dates: start: 20191124
  20. DEXAMETHASONE [Concomitant]
     Active Substance: DEXAMETHASONE
     Dosage: UNK
     Route: 065
     Dates: start: 20191202, end: 20191202
  21. DEXAMETHASONE [Concomitant]
     Active Substance: DEXAMETHASONE
     Dosage: UNK
     Route: 065
     Dates: start: 20200206, end: 20200206
  22. TAMSULOSIN HYDROCHLORIDE [Concomitant]
     Active Substance: TAMSULOSIN HYDROCHLORIDE
     Indication: Product used for unknown indication
     Dosage: UNK
     Route: 065
     Dates: start: 20191124
  23. VALACYCLOVIR HYDROCHLORIDE [Concomitant]
     Active Substance: VALACYCLOVIR HYDROCHLORIDE
     Indication: Product used for unknown indication
     Dosage: UNK
     Route: 065
     Dates: start: 20191124
  24. LEUCOVORIN CALCIUM [Concomitant]
     Active Substance: LEUCOVORIN CALCIUM
     Indication: Product used for unknown indication
     Dosage: UNK
     Route: 065
     Dates: start: 20191124
  25. EUPANTOL [Concomitant]
     Active Substance: PANTOPRAZOLE SODIUM
     Indication: Product used for unknown indication
     Dosage: UNK
     Route: 065
  26. FUROSEMIDE [Concomitant]
     Active Substance: FUROSEMIDE
     Indication: Product used for unknown indication
     Dosage: UNK
     Route: 065
     Dates: start: 20191202
  27. BACTRIM [Concomitant]
     Active Substance: SULFAMETHOXAZOLE\TRIMETHOPRIM
     Indication: Product used for unknown indication
     Dosage: UNK
     Route: 065
     Dates: start: 20191125
  28. METHYLPREDNISOLONE [Concomitant]
     Active Substance: METHYLPREDNISOLONE
     Indication: Product used for unknown indication
     Dosage: UNK
     Route: 065
     Dates: start: 20191127, end: 20191127
  29. FUNGIZONE [Concomitant]
     Active Substance: AMPHOTERICIN B
     Indication: Product used for unknown indication
     Dosage: UNK
     Route: 065
     Dates: start: 20191216, end: 20200121
  30. LYRICA [Concomitant]
     Active Substance: PREGABALIN
     Indication: Product used for unknown indication
     Dosage: UNK
     Route: 065
  31. AMLODIPINE BESYLATE [Concomitant]
     Active Substance: AMLODIPINE BESYLATE
     Indication: Product used for unknown indication
     Dosage: UNK
     Route: 065
     Dates: start: 20191215, end: 20200103
  32. PIPERACILLIN SODIUM\TAZOBACTAM SODIUM [Concomitant]
     Active Substance: PIPERACILLIN SODIUM\TAZOBACTAM SODIUM
     Indication: Product used for unknown indication
     Dosage: UNK
     Route: 065
     Dates: start: 20191203

REACTIONS (4)
  - Sepsis [Recovered/Resolved]
  - Pneumonia [Recovered/Resolved]
  - Endocarditis [Recovered/Resolved]
  - Septic shock [Recovered/Resolved]

NARRATIVE: CASE EVENT DATE: 20200102
